FAERS Safety Report 9413586 (Version 2)
Quarter: 2013Q3

REPORT INFORMATION
  Report Type: Spontaneous
  Country: DE (occurrence: DE)
  Receive Date: 20130722
  Receipt Date: 20130823
  Transmission Date: 20140515
  Serious: Yes (Hospitalization, Other)
  Sender: FDA-Public Use
  Company Number: DE-COVIDIEN/TYCO HEALTHCARE/MALLINCKRODT-T201303738

PATIENT
  Age: 70 Year
  Sex: Female

DRUGS (11)
  1. EXALGO EXTENDED RELEASE [Suspect]
     Indication: BACK PAIN
     Dosage: 12 MG, UNK
     Route: 048
     Dates: start: 2011
  2. PALLADON [Concomitant]
     Dosage: UNK
  3. CYMBALTA [Concomitant]
     Dosage: UNK
  4. AMITRIPTYLINE [Concomitant]
     Dosage: UNK
  5. OMEPRAZOLE [Concomitant]
     Dosage: UNK
  6. REPAGLINIDE [Concomitant]
     Dosage: UNK
  7. METODURA [Concomitant]
     Dosage: UNK
  8. SIMVASTATIN [Concomitant]
     Dosage: UNK
  9. ALLOPURINOL [Concomitant]
     Dosage: UNK
  10. ENALAPRIL [Concomitant]
     Dosage: UNK
  11. NOVALGIN                           /06276704/ [Concomitant]
     Dosage: UNK

REACTIONS (3)
  - Mania [Recovered/Resolved]
  - Personality change [Recovered/Resolved]
  - Hallucination, auditory [Recovered/Resolved]
